FAERS Safety Report 11593492 (Version 1)
Quarter: 2015Q4

REPORT INFORMATION
  Report Type: Spontaneous
  Country: US (occurrence: None)
  Receive Date: 20151002
  Receipt Date: 20151002
  Transmission Date: 20160304
  Serious: Yes (Life-Threatening, Hospitalization)
  Sender: FDA-Public Use
  Company Number: None

PATIENT
  Age: 69 Year
  Sex: Female
  Weight: 87 kg

DRUGS (32)
  1. BISACODYL. [Concomitant]
     Active Substance: BISACODYL
  2. FUROSEMIDE. [Concomitant]
     Active Substance: FUROSEMIDE
  3. LISINOPRIL. [Concomitant]
     Active Substance: LISINOPRIL
  4. FLUTICASONE [Concomitant]
     Active Substance: FLUTICASONE\FLUTICASONE PROPIONATE
  5. PREGABALIN. [Concomitant]
     Active Substance: PREGABALIN
  6. NYSTATIN. [Concomitant]
     Active Substance: NYSTATIN
  7. PREDNISONE. [Concomitant]
     Active Substance: PREDNISONE
  8. PYRIDOXINE [Concomitant]
     Active Substance: PYRIDOXINE
  9. FORTEO [Concomitant]
     Active Substance: TERIPARATIDE
  10. LANTUS [Concomitant]
     Active Substance: INSULIN GLARGINE
  11. MECLIZINE [Concomitant]
     Active Substance: MECLIZINE\MECLIZINE HYDROCHLORIDE
  12. ALBUTEROL INHALER [Concomitant]
     Active Substance: ALBUTEROL
  13. ALLOPURINOL. [Concomitant]
     Active Substance: ALLOPURINOL
  14. MORPHINE SR [Concomitant]
     Active Substance: MORPHINE
  15. ONDANSETRON [Concomitant]
     Active Substance: ONDANSETRON
  16. POTASSIUM [Concomitant]
     Active Substance: POTASSIUM
  17. SIMETHICONE (DIMETHICONE) [Concomitant]
     Active Substance: DIMETHICONE
  18. LEVOTHYROXINE. [Concomitant]
     Active Substance: LEVOTHYROXINE
  19. ASPIRIN. [Concomitant]
     Active Substance: ASPIRIN
  20. CALCIUM CARBONATE. [Concomitant]
     Active Substance: CALCIUM CARBONATE
  21. CARVEDILOL. [Concomitant]
     Active Substance: CARVEDILOL
  22. FERROUS SULFATE [Concomitant]
     Active Substance: FERROUS SULFATE\FERROUS SULFATE, DRIED
  23. JANUVIA [Concomitant]
     Active Substance: SITAGLIPTIN PHOSPHATE
  24. CHOLECALCIFEROL [Concomitant]
     Active Substance: CHOLECALCIFEROL
  25. RIVAROXABAN [Suspect]
     Active Substance: RIVAROXABAN
     Indication: DEEP VEIN THROMBOSIS
     Route: 048
  26. CLOPIDOGREL [Concomitant]
     Active Substance: CLOPIDOGREL BISULFATE
  27. CYANOCOBALAMIN. [Concomitant]
     Active Substance: CYANOCOBALAMIN
  28. HYDROXYCLOROQUINE [Concomitant]
     Active Substance: HYDROXYCHLOROQUINE
  29. PANTOPRAZOLE [Concomitant]
     Active Substance: PANTOPRAZOLE SODIUM
  30. ATORVASTATIN [Concomitant]
     Active Substance: ATORVASTATIN
  31. FOLIC ACID. [Concomitant]
     Active Substance: FOLIC ACID
  32. ACETAMINOPHEN. [Concomitant]
     Active Substance: ACETAMINOPHEN

REACTIONS (6)
  - Vomiting [None]
  - Haemoglobin decreased [None]
  - Abdominal pain upper [None]
  - Faeces discoloured [None]
  - Hypotension [None]
  - Blood potassium decreased [None]

NARRATIVE: CASE EVENT DATE: 20150923
